FAERS Safety Report 9192585 (Version 1)
Quarter: 2013Q1

REPORT INFORMATION
  Report Type: Spontaneous
  Country: US (occurrence: None)
  Receive Date: 20130326
  Receipt Date: 20130326
  Transmission Date: 20140127
  Serious: No
  Sender: FDA-Public Use
  Company Number: None

PATIENT
  Age: 63 Year
  Sex: Female

DRUGS (1)
  1. XELODA 500 MG GENENTECH [Suspect]
     Indication: BREAST CANCER
     Dosage: DAILY FOR 7 DAYS ON THEN 7 OFF
     Route: 048
     Dates: start: 20130213, end: 20130301

REACTIONS (2)
  - Adverse reaction [None]
  - Therapy change [None]
